FAERS Safety Report 7501843-8 (Version None)
Quarter: 2011Q2

REPORT INFORMATION
  Report Type: 
  Country: None (occurrence: None)
  Receive Date: 20110525
  Receipt Date: 20110505
  Transmission Date: 20111010
  Serious: Yes (Other)
  Sender: FDA-Public Use
  Company Number: US-BAYER-2011-008731

PATIENT
  Age: 27 Year
  Sex: Female
  Weight: 77.098 kg

DRUGS (5)
  1. YASMIN [Suspect]
     Indication: CONTRACEPTION
     Dosage: 1 TAB / DAY
     Route: 048
     Dates: start: 20040101, end: 20080828
  2. NEXIUM [Concomitant]
     Dosage: 2008
  3. YASMIN [Suspect]
     Indication: MENSTRUATION IRREGULAR
  4. DROSPIRENONE AND ETHINYL ESTRADIOL [Suspect]
     Indication: CONTRACEPTION
     Dosage: 1 TAB / DAY
     Route: 048
     Dates: start: 20080829, end: 20100521
  5. DROSPIRENONE AND ETHINYL ESTRADIOL [Suspect]
     Indication: MENSTRUAL DISORDER

REACTIONS (5)
  - PAIN [None]
  - CHOLECYSTITIS CHRONIC [None]
  - GALLBLADDER DISORDER [None]
  - ANXIETY [None]
  - ABDOMINAL PAIN UPPER [None]
